FAERS Safety Report 21033421 (Version 2)
Quarter: 2022Q3

REPORT INFORMATION
  Report Type: Report from Study
  Country: SE (occurrence: SE)
  Receive Date: 20220701
  Receipt Date: 20220817
  Transmission Date: 20221027
  Serious: Yes (Death, Life-Threatening, Hospitalization, Other)
  Sender: FDA-Public Use
  Company Number: SE-Accord-267737

PATIENT
  Age: 14 Year
  Sex: Female

DRUGS (2)
  1. SERTRALINE [Suspect]
     Active Substance: SERTRALINE HYDROCHLORIDE
     Indication: Acute psychosis
  2. OLANZAPINE [Suspect]
     Active Substance: OLANZAPINE
     Indication: Acute psychosis
     Dosage: 5MG ONCE DAILY

REACTIONS (8)
  - Neuroleptic malignant syndrome [Fatal]
  - Off label use [Unknown]
  - Rhabdomyolysis [Fatal]
  - Renal failure [Fatal]
  - Hepatic failure [Fatal]
  - Hyperthermia [Fatal]
  - Brain oedema [Fatal]
  - Unresponsive to stimuli [Fatal]
